FAERS Safety Report 9637111 (Version 1)
Quarter: 2013Q4

REPORT INFORMATION
  Report Type: Spontaneous
  Country: US (occurrence: US)
  Receive Date: 20131022
  Receipt Date: 20131022
  Transmission Date: 20140711
  Serious: Yes (Hospitalization, Other)
  Sender: FDA-Public Use
  Company Number: US-SA-2013SA104261

PATIENT
  Age: 56 Year
  Sex: Female

DRUGS (6)
  1. LANTUS [Suspect]
     Indication: TYPE 1 DIABETES MELLITUS
     Dosage: 20-22 UNITS
     Route: 051
  2. NOVOLOG [Suspect]
     Dosage: DOSE:2 UNIT(S)
     Route: 065
  3. CARDIZEM [Suspect]
     Route: 065
  4. SPIRONOLACTONE [Suspect]
     Route: 065
     Dates: start: 20131014
  5. HYDROCHLOROTHIAZIDE [Suspect]
     Route: 065
  6. HYDRALAZINE [Suspect]
     Route: 065

REACTIONS (9)
  - Tooth disorder [Unknown]
  - Ear disorder [Unknown]
  - Intervertebral disc disorder [Unknown]
  - Road traffic accident [Unknown]
  - Blood pressure increased [Unknown]
  - Blood glucose increased [Unknown]
  - Drug dose omission [Unknown]
  - Hypersensitivity [Unknown]
  - Paraesthesia [Unknown]
